FAERS Safety Report 8095231-6 (Version None)
Quarter: 2012Q1

REPORT INFORMATION
  Report Type: 
  Country: None (occurrence: None)
  Receive Date: 20120129
  Receipt Date: 20111219
  Transmission Date: 20120608
  Serious: No
  Sender: FDA-Public Use
  Company Number: US-ABBOTT-11P-163-0884646-00

PATIENT
  Age: 64 Year
  Sex: Male

DRUGS (8)
  1. WELLBUTRIN [Concomitant]
     Indication: DEPRESSION
     Dosage: GENERIC, DAILY
  2. VITAMIN D [Concomitant]
     Indication: VITAMIN SUPPLEMENTATION
     Dosage: DAILY
  3. CIALIS [Concomitant]
     Indication: PRODUCT USED FOR UNKNOWN INDICATION
     Dosage: RARELY TAKES ENTIRE TABLET PRN
  4. HUMIRA [Suspect]
     Dosage: 80 MG 2011
     Dates: start: 20111220
  5. ATENOLOL [Concomitant]
     Indication: HYPERTENSION
     Dosage: DAILY
  6. DOXAZOSIN [Concomitant]
     Indication: HYPERTENSION
     Dosage: DAILY
  7. HUMIRA [Suspect]
     Indication: CROHN'S DISEASE
     Dosage: 160 MG DAY 1
     Dates: start: 20111206
  8. MULTI-VITAMIN [Concomitant]
     Indication: VITAMIN SUPPLEMENTATION
     Dosage: DAILY

REACTIONS (2)
  - ARTHRITIS [None]
  - FATIGUE [None]
